FAERS Safety Report 4985353-8 (Version None)
Quarter: 2006Q1

REPORT INFORMATION
  Report Type: 
  Country: None (occurrence: None)
  Receive Date: 20060309
  Receipt Date: 20050427
  Transmission Date: 20060701
  Serious: Yes (Other)
  Sender: FDA-Public Use
  Company Number: 403473

PATIENT
  Age: 31 Year
  Sex: Male

DRUGS (1)
  1. ACCUTANE [Suspect]
     Indication: ACNE CYSTIC
     Dosage: 40 MG 2 PER WEEK ORAL
     Route: 048
     Dates: start: 20030303, end: 20030715

REACTIONS (1)
  - CROHN'S DISEASE [None]
